FAERS Safety Report 9454456 (Version 1)
Quarter: 2013Q3

REPORT INFORMATION
  Report Type: Spontaneous
  Country: JP (occurrence: JP)
  Receive Date: 20130812
  Receipt Date: 20130812
  Transmission Date: 20140515
  Serious: Yes (Other)
  Sender: FDA-Public Use
  Company Number: JP-BAYER-2013-096116

PATIENT
  Age: 31 Year
  Sex: Female

DRUGS (2)
  1. BAYASPIRIN [Suspect]
     Route: 048
  2. UNFRACTIONATED HEPARIN [Concomitant]
     Dosage: UNK

REACTIONS (4)
  - Oligohydramnios [None]
  - Foetal growth restriction [None]
  - Abortion [None]
  - Hepatic function abnormal [None]
